FAERS Safety Report 13514365 (Version 1)
Quarter: 2017Q2

REPORT INFORMATION
  Report Type: Spontaneous
  Country: DE (occurrence: DE)
  Receive Date: 20170504
  Receipt Date: 20170504
  Transmission Date: 20170830
  Serious: Yes (Death)
  Sender: FDA-Public Use
  Company Number: GXKR2017DE002499

PATIENT

DRUGS (1)
  1. METHOTREXATE. [Suspect]
     Active Substance: METHOTREXATE
     Indication: T-CELL TYPE ACUTE LEUKAEMIA
     Dosage: 15 MG, UNK
     Route: 065
     Dates: start: 20170328, end: 20170405

REACTIONS (4)
  - Drug prescribing error [Fatal]
  - Pancytopenia [Fatal]
  - Sepsis [Fatal]
  - Overdose [Fatal]
